FAERS Safety Report 10236099 (Version 2)
Quarter: 2014Q2

REPORT INFORMATION
  Report Type: Spontaneous
  Country: US (occurrence: US)
  Receive Date: 20140613
  Receipt Date: 20140613
  Transmission Date: 20141212
  Serious: No
  Sender: FDA-Public Use
  Company Number: US-ASTRAZENECA-2012SE83420

PATIENT
  Age: 50 Year
  Sex: Female
  Weight: 77.6 kg

DRUGS (5)
  1. NEXIUM [Suspect]
     Indication: HIATUS HERNIA
     Route: 048
     Dates: start: 2012, end: 201404
  2. OMEPRAZOLE OTC [Suspect]
     Indication: DYSPHAGIA
     Route: 048
     Dates: start: 2009, end: 2011
  3. NAPROXEN [Suspect]
     Indication: BURSITIS
     Dosage: 500MG Q12H PRN
     Route: 048
     Dates: start: 20140416
  4. NORTRIPTYLINE HCL [Concomitant]
     Indication: ANTIDEPRESSANT THERAPY
     Dosage: 25MG NIGHTLY
     Route: 048
     Dates: start: 20140306
  5. VITAMIN D2 [Concomitant]
     Indication: VITAMIN D DEFICIENCY
     Route: 048
     Dates: start: 20140306

REACTIONS (20)
  - Chest pain [Not Recovered/Not Resolved]
  - Chest discomfort [Not Recovered/Not Resolved]
  - Back pain [Recovered/Resolved]
  - DNA antibody positive [Not Recovered/Not Resolved]
  - Sjogren^s syndrome [Not Recovered/Not Resolved]
  - Intervertebral disc disorder [Not Recovered/Not Resolved]
  - Fatigue [Recovered/Resolved]
  - Bursitis [Not Recovered/Not Resolved]
  - Headache [Recovered/Resolved]
  - Abdominal pain [Not Recovered/Not Resolved]
  - Diarrhoea [Unknown]
  - Constipation [Unknown]
  - Hiatus hernia [Not Recovered/Not Resolved]
  - Dysphagia [Recovered/Resolved]
  - Flatulence [Unknown]
  - Dysphagia [Recovered/Resolved]
  - Dyspnoea [Recovered/Resolved]
  - Musculoskeletal chest pain [Recovered/Resolved]
  - Intentional product misuse [Not Recovered/Not Resolved]
  - Drug ineffective [Recovered/Resolved]
